FAERS Safety Report 20385959 (Version 1)
Quarter: 2022Q1

REPORT INFORMATION
  Report Type: Spontaneous
  Country: US (occurrence: US)
  Receive Date: 20220127
  Receipt Date: 20220127
  Transmission Date: 20220423
  Serious: No
  Sender: FDA-Public Use
  Company Number: US-DSJP-DSU-2022-102366AA

PATIENT
  Age: 83 Year
  Sex: Female

DRUGS (3)
  1. WELCHOL [Suspect]
     Active Substance: COLESEVELAM HYDROCHLORIDE
     Indication: Diarrhoea
     Dosage: 4 TABLETS, QD
     Route: 048
     Dates: start: 20160824, end: 20200104
  2. WELCHOL [Suspect]
     Active Substance: COLESEVELAM HYDROCHLORIDE
     Dosage: 2 TABLETS, QD
     Route: 048
  3. COLESEVELAM [Suspect]
     Active Substance: COLESEVELAM
     Indication: Product used for unknown indication
     Dosage: UNK
     Route: 065
     Dates: start: 20200104, end: 20210713

REACTIONS (7)
  - Off label use [Unknown]
  - Incorrect dose administered [Recovered/Resolved]
  - Headache [Unknown]
  - Chest pain [Unknown]
  - Irritable bowel syndrome [Unknown]
  - Macular degeneration [Unknown]
  - Feeling abnormal [Unknown]

NARRATIVE: CASE EVENT DATE: 20220119
